FAERS Safety Report 6645664-7 (Version None)
Quarter: 2010Q1

REPORT INFORMATION
  Report Type: 
  Country: None (occurrence: None)
  Receive Date: 20100323
  Receipt Date: 20100315
  Transmission Date: 20100710
  Serious: No
  Sender: FDA-Public Use
  Company Number: DE-ASTRAZENECA-2010SE11052

PATIENT
  Age: 37 Year
  Sex: Male
  Weight: 84 kg

DRUGS (1)
  1. SEROQUEL XR [Suspect]
     Indication: SCHIZOAFFECTIVE DISORDER
     Route: 048
     Dates: start: 20100107, end: 20100128

REACTIONS (2)
  - GRANULOCYTOPENIA [None]
  - LEUKOPENIA [None]
